FAERS Safety Report 5750881-4 (Version None)
Quarter: 2008Q2

REPORT INFORMATION
  Report Type: 
  Country: None (occurrence: None)
  Receive Date: 20080528
  Receipt Date: 20080520
  Transmission Date: 20081010
  Serious: Yes (Other)
  Sender: FDA-Public Use
  Company Number: US-KINGPHARMUSA00001-K200800578

PATIENT

DRUGS (2)
  1. THROMBIN NOS [Suspect]
     Indication: OPERATIVE HAEMORRHAGE
     Dates: start: 20080520, end: 20080520
  2. MORPHINE [Suspect]
     Dates: start: 20080520, end: 20080520

REACTIONS (2)
  - FLUSHING [None]
  - HYPOTENSION [None]
